FAERS Safety Report 17668361 (Version 1)
Quarter: 2020Q2

REPORT INFORMATION
  Report Type: Spontaneous
  Country: FR (occurrence: FR)
  Receive Date: 20200414
  Receipt Date: 20200414
  Transmission Date: 20200713
  Serious: Yes (Hospitalization)
  Sender: FDA-Public Use
  Company Number: FR-ACCORD-178709

PATIENT
  Age: 95 Year
  Sex: Female
  Weight: 69 kg

DRUGS (12)
  1. VENLAFAXINE/VENLAFAXINE HYDROCHLORIDE [Concomitant]
     Active Substance: VENLAFAXINE HYDROCHLORIDE
  2. LEVOTHYROXINE. [Concomitant]
     Active Substance: LEVOTHYROXINE
  3. BURINEX [Concomitant]
     Active Substance: BUMETANIDE
  4. DERMOVAL [Concomitant]
  5. FLECAINIDE [Concomitant]
     Active Substance: FLECAINIDE
  6. LYRICA [Concomitant]
     Active Substance: PREGABALIN
     Dosage: STRENGTH: 25 MG
  7. PERINDOPRIL [Concomitant]
     Active Substance: PERINDOPRIL
  8. KARDEGIC [Concomitant]
     Active Substance: ASPIRIN DL-LYSINE
     Dosage: STRENGTH: 75 MG POWDER FOR ORAL SOLUTION IN SACHET-DOSE
  9. XALATAN [Concomitant]
     Active Substance: LATANOPROST
  10. PARACETAMOL [Concomitant]
     Active Substance: ACETAMINOPHEN
  11. METHOTREXATE. [Suspect]
     Active Substance: METHOTREXATE
     Indication: PEMPHIGOID
     Route: 048
     Dates: start: 20180503, end: 201904
  12. SPECIAFOLDINE [Concomitant]
     Active Substance: FOLIC ACID

REACTIONS (2)
  - Off label use [Unknown]
  - Interstitial lung disease [Recovered/Resolved]

NARRATIVE: CASE EVENT DATE: 20190417
